FAERS Safety Report 8002644-7 (Version None)
Quarter: 2011Q4

REPORT INFORMATION
  Report Type: 
  Country: None (occurrence: None)
  Receive Date: 20111222
  Receipt Date: 20111219
  Transmission Date: 20120403
  Serious: Yes (Other)
  Sender: FDA-Public Use
  Company Number: BW-GLAXOSMITHKLINE-B0770540A

PATIENT
  Age: 36 Year
  Sex: Female

DRUGS (3)
  1. XYZAL [Concomitant]
     Indication: PRODUCT USED FOR UNKNOWN INDICATION
     Dosage: 5MG PER DAY
     Route: 048
  2. DESLORATADINE [Concomitant]
     Indication: PRODUCT USED FOR UNKNOWN INDICATION
     Route: 048
  3. FLUTICASONE FUROATE [Suspect]
     Indication: RHINITIS ALLERGIC
     Dosage: 110MCG PER DAY
     Route: 065

REACTIONS (1)
  - STOMATITIS [None]
